FAERS Safety Report 21457447 (Version 1)
Quarter: 2022Q4

REPORT INFORMATION
  Report Type: Spontaneous
  Country: US (occurrence: None)
  Receive Date: 20221007
  Receipt Date: 20221007
  Transmission Date: 20230113
  Serious: No
  Sender: FDA-Public Use
  Company Number: None

PATIENT

DRUGS (2)
  1. MOUNJARO [Suspect]
     Active Substance: TIRZEPATIDE
     Dosage: DOSE: 2.5MG/0.5ML PEN
     Route: 058
  2. MOUNJARO [Suspect]
     Active Substance: TIRZEPATIDE
     Dosage: DOSE: 5MG/0.5ML PEN
     Route: 058

REACTIONS (4)
  - Product label on wrong product [None]
  - Drug monitoring procedure not performed [None]
  - Product administration error [None]
  - Product packaging confusion [None]
